FAERS Safety Report 24881845 (Version 2)
Quarter: 2025Q3

REPORT INFORMATION
  Report Type: Report from Study
  Country: US (occurrence: US)
  Receive Date: 20250124
  Receipt Date: 20250809
  Transmission Date: 20251021
  Serious: Yes (Other)
  Sender: ALEXION PHARMACEUTICALS
  Company Number: US-AstraZeneca-CH-00787964A

PATIENT
  Sex: Female

DRUGS (2)
  1. ROFLUMILAST [Suspect]
     Active Substance: ROFLUMILAST
  2. ZENPEP [Concomitant]
     Active Substance: PANCRELIPASE AMYLASE\PANCRELIPASE LIPASE\PANCRELIPASE PROTEASE
     Route: 065

REACTIONS (3)
  - Pneumonia fungal [Unknown]
  - Chronic obstructive pulmonary disease [Unknown]
  - Product use complaint [Unknown]
